FAERS Safety Report 20836800 (Version 1)
Quarter: 2022Q2

REPORT INFORMATION
  Report Type: Spontaneous
  Country: US (occurrence: US)
  Receive Date: 20220517
  Receipt Date: 20220517
  Transmission Date: 20220721
  Serious: No
  Sender: FDA-Public Use
  Company Number: US-BRISTOL-MYERS SQUIBB COMPANY-2022-025005

PATIENT
  Age: 63 Year
  Sex: Female

DRUGS (1)
  1. REVLIMID [Suspect]
     Active Substance: LENALIDOMIDE
     Indication: Chronic kidney disease
     Dosage: TAKE 1 CAPSULE BY MOUTH EVERY DAY FOR 28 DAYS OUT OF A 28 DAY CYCLE.
     Route: 048

REACTIONS (2)
  - Back pain [Unknown]
  - Unintentional use for unapproved indication [Unknown]
